FAERS Safety Report 5150753-2 (Version None)
Quarter: 2006Q4

REPORT INFORMATION
  Report Type: 
  Country: None (occurrence: None)
  Receive Date: 20061114
  Receipt Date: 20061010
  Transmission Date: 20070319
  Serious: No
  Sender: FDA-Public Use
  Company Number: US-ELI_LILLY_AND_COMPANY-US200610002370

PATIENT
  Age: 42 Year
  Sex: Female
  Weight: 181.41 kg

DRUGS (1)
  1. CYMBALTA [Suspect]

REACTIONS (2)
  - BLOOD PRESSURE INCREASED [None]
  - NO ADVERSE EFFECT [None]
